FAERS Safety Report 7351000-3 (Version None)
Quarter: 2011Q1

REPORT INFORMATION
  Report Type: 
  Country: None (occurrence: None)
  Receive Date: 20110314
  Receipt Date: 20110304
  Transmission Date: 20110831
  Serious: Yes (Other)
  Sender: FDA-Public Use
  Company Number: GXBR2011US00906

PATIENT
  Sex: Female

DRUGS (4)
  1. MILNACIPRAN [Suspect]
  2. CLONIDINE HCL TABLETS USP [Suspect]
  3. NEURONTIN [Suspect]
  4. VALIUM [Suspect]

REACTIONS (1)
  - SPINAL OPERATION [None]
